FAERS Safety Report 9387014 (Version 1)
Quarter: 2013Q3

REPORT INFORMATION
  Report Type: Spontaneous
  Country: US (occurrence: None)
  Receive Date: 20130703
  Receipt Date: 20130703
  Transmission Date: 20140515
  Serious: Yes (Other)
  Sender: FDA-Public Use
  Company Number: None

PATIENT
  Age: 41 Year
  Sex: Female
  Weight: 52.16 kg

DRUGS (4)
  1. SIMVASTATIN [Suspect]
     Indication: TYPE IIA HYPERLIPIDAEMIA
     Dosage: THERAPY DATE?START: 3-4 YEARS AGO?STOP: 6/5/13
     Route: 048
     Dates: end: 20130605
  2. LEVOTHVROXINE [Concomitant]
  3. TOPAMAX [Concomitant]
  4. ADVIL [Concomitant]

REACTIONS (2)
  - Tremor [None]
  - Muscle contractions involuntary [None]
